FAERS Safety Report 5056602-5 (Version None)
Quarter: 2006Q2

REPORT INFORMATION
  Report Type: 
  Country: None (occurrence: None)
  Receive Date: 20060616
  Receipt Date: 20060329
  Transmission Date: 20061013
  Serious: No
  Sender: FDA-Public Use
  Company Number: 2006US000754

PATIENT
  Sex: Female

DRUGS (1)
  1. VESICARE [Suspect]
     Indication: DRUG USE FOR UNKNOWN INDICATION
     Dosage: 5 MG

REACTIONS (6)
  - CHEST PAIN [None]
  - DIZZINESS [None]
  - HEADACHE [None]
  - INCONTINENCE [None]
  - MUSCULOSKELETAL CHEST PAIN [None]
  - STOMACH DISCOMFORT [None]
